FAERS Safety Report 21393032 (Version 1)
Quarter: 2022Q3

REPORT INFORMATION
  Report Type: Spontaneous
  Country: US (occurrence: None)
  Receive Date: 20220928
  Receipt Date: 20220928
  Transmission Date: 20221026
  Serious: Yes (Hospitalization)
  Sender: FDA-Public Use
  Company Number: None

PATIENT
  Age: 66 Year
  Sex: Female
  Weight: 60.5 kg

DRUGS (6)
  1. XIFAXAN [Suspect]
     Active Substance: RIFAXIMIN
     Indication: Hepatic encephalopathy
     Dosage: FREQUENCY : TWICE A DAY;?
     Route: 048
     Dates: start: 20220325, end: 20220505
  2. TRAMADOL [Concomitant]
     Active Substance: TRAMADOL
  3. CLONAZEPAM [Concomitant]
     Active Substance: CLONAZEPAM
  4. BUPROPION [Concomitant]
     Active Substance: BUPROPION
  5. FAMOTIDINE [Concomitant]
     Active Substance: FAMOTIDINE
  6. TRAZODONE [Concomitant]
     Active Substance: TRAZODONE HYDROCHLORIDE

REACTIONS (1)
  - Upper gastrointestinal haemorrhage [None]

NARRATIVE: CASE EVENT DATE: 20220505
